FAERS Safety Report 12341777 (Version 1)
Quarter: 2016Q2

REPORT INFORMATION
  Report Type: Report from Study
  Country: US (occurrence: US)
  Receive Date: 20160506
  Receipt Date: 20160506
  Transmission Date: 20160815
  Serious: Yes (Other)
  Sender: FDA-Public Use
  Company Number: US-ABBVIE-16K-163-1620486-00

PATIENT
  Sex: Female
  Weight: 58.11 kg

DRUGS (2)
  1. HUMIRA [Suspect]
     Active Substance: ADALIMUMAB
     Route: 058
     Dates: start: 2015, end: 201504
  2. HUMIRA [Suspect]
     Active Substance: ADALIMUMAB
     Indication: RHEUMATOID ARTHRITIS
     Route: 058
     Dates: start: 2013, end: 2015

REACTIONS (5)
  - Cataract [Recovering/Resolving]
  - Rash [Recovered/Resolved]
  - Glaucoma [Recovering/Resolving]
  - Crystal arthropathy [Recovered/Resolved]
  - Postoperative wound complication [Recovered/Resolved]

NARRATIVE: CASE EVENT DATE: 2015
